FAERS Safety Report 6436891-2 (Version None)
Quarter: 2009Q4

REPORT INFORMATION
  Report Type: 
  Country: None (occurrence: None)
  Receive Date: 20091109
  Receipt Date: 20091029
  Transmission Date: 20100525
  Serious: Yes (Death)
  Sender: FDA-Public Use
  Company Number: WAES 0911SWE00010

PATIENT
  Age: 78 Year
  Sex: Male

DRUGS (1)
  1. ZOCOR [Suspect]
     Dosage: 20 MG/DAILY/PO
     Route: 048

REACTIONS (1)
  - LIVER INJURY [None]
